FAERS Safety Report 14160657 (Version 2)
Quarter: 2017Q4

REPORT INFORMATION
  Report Type: Report from Study
  Country: RU (occurrence: RU)
  Receive Date: 20171106
  Receipt Date: 20171207
  Transmission Date: 20180321
  Serious: Yes (Hospitalization)
  Sender: FDA-Public Use
  Company Number: RU-UCBSA-2017043728

PATIENT
  Age: 13 Year
  Sex: Male
  Weight: 61 kg

DRUGS (4)
  1. CERTOLIZUMAB PEGOL JIA [Suspect]
     Active Substance: CERTOLIZUMAB PEGOL
     Dosage: 100 MG, UNK
     Route: 058
     Dates: start: 20140616, end: 20141016
  2. CERTOLIZUMAB PEGOL JIA [Suspect]
     Active Substance: CERTOLIZUMAB PEGOL
     Dosage: 50 MG, UNK
     Route: 058
     Dates: start: 20131226, end: 20140602
  3. CERTOLIZUMAB PEGOL JIA [Suspect]
     Active Substance: CERTOLIZUMAB PEGOL
     Indication: JUVENILE IDIOPATHIC ARTHRITIS
     Dosage: 200 MG, UNK
     Route: 058
     Dates: start: 20130520, end: 20130617
  4. CERTOLIZUMAB PEGOL JIA [Suspect]
     Active Substance: CERTOLIZUMAB PEGOL
     Dosage: 100 MG, UNK
     Route: 058
     Dates: start: 20130701, end: 20131212

REACTIONS (1)
  - Pneumonia [Recovered/Resolved]

NARRATIVE: CASE EVENT DATE: 20171028
